FAERS Safety Report 12503463 (Version 2)
Quarter: 2016Q3

REPORT INFORMATION
  Report Type: Spontaneous
  Country: US (occurrence: US)
  Receive Date: 20160628
  Receipt Date: 20160803
  Transmission Date: 20161109
  Serious: No
  Sender: FDA-Public Use
  Company Number: US-PFIZER INC-2016284237

PATIENT

DRUGS (2)
  1. MARCAINE [Suspect]
     Active Substance: BUPIVACAINE HYDROCHLORIDE
     Route: 050
  2. DURAMORPH [Suspect]
     Active Substance: MORPHINE SULFATE
     Dosage: 0.25 MG, UNK

REACTIONS (1)
  - Drug effect incomplete [Unknown]
